FAERS Safety Report 8537063-8 (Version None)
Quarter: 2012Q3

REPORT INFORMATION
  Report Type: 
  Country: None (occurrence: None)
  Receive Date: 20120725
  Receipt Date: 20120714
  Transmission Date: 20120928
  Serious: Yes (Hospitalization, Other)
  Sender: FDA-Public Use
  Company Number: US-BAYER-2011-013557

PATIENT
  Age: 27 Year
  Sex: Female

DRUGS (10)
  1. METRONIDAZOLE [Concomitant]
  2. YAZ [Suspect]
     Indication: ACNE
  3. PEPCID [Concomitant]
  4. MOTRIN [Concomitant]
  5. XOPENEX [Concomitant]
  6. YAZ [Suspect]
     Indication: CONTRACEPTION
     Dosage: UNK
     Dates: start: 20081001, end: 20081101
  7. RHINOCORT [Concomitant]
  8. YASMIN [Suspect]
     Indication: CONTRACEPTION
     Dosage: UNK
     Dates: start: 20081001, end: 20081101
  9. YASMIN [Suspect]
     Indication: ACNE
  10. ZYRTEC [Concomitant]

REACTIONS (9)
  - DEHYDRATION [None]
  - ANXIETY [None]
  - HAEMORRHAGE [None]
  - GALLBLADDER DISORDER [None]
  - DIARRHOEA [None]
  - EMOTIONAL DISTRESS [None]
  - BILIARY DYSKINESIA [None]
  - INJURY [None]
  - PAIN [None]
